FAERS Safety Report 24767868 (Version 1)
Quarter: 2024Q4

REPORT INFORMATION
  Report Type: Spontaneous
  Country: US (occurrence: None)
  Receive Date: 20241222
  Receipt Date: 20241222
  Transmission Date: 20250114
  Serious: Yes (Other)
  Sender: Public
  Company Number: None

PATIENT
  Age: 63 Year
  Sex: Female
  Weight: 76.5 kg

DRUGS (21)
  1. TERIPARATIDE [Suspect]
     Active Substance: TERIPARATIDE
     Dosage: 1 INJECTION SUBCUTANEOUS
     Route: 058
     Dates: start: 20240915, end: 20241220
  2. LIOTHYRONINE SODIUM [Concomitant]
     Active Substance: LIOTHYRONINE SODIUM
  3. UNITHROID [Concomitant]
     Active Substance: LEVOTHYROXINE SODIUM
  4. LOSARTAN [Concomitant]
     Active Substance: LOSARTAN
  5. AMLODIPINE [Concomitant]
     Active Substance: AMLODIPINE BESYLATE
  6. SINGULAIR [Concomitant]
     Active Substance: MONTELUKAST SODIUM
  7. DUPIXANT [Concomitant]
  8. TRELEGY ELLIPTA [Concomitant]
     Active Substance: FLUTICASONE FUROATE\UMECLIDINIUM BROMIDE\VILANTEROL TRIFENATATE
  9. ALBUTEROL [Concomitant]
     Active Substance: ALBUTEROL
  10. BUDENESIDE [Concomitant]
  11. BACLOFEN [Concomitant]
     Active Substance: BACLOFEN
  12. ATARAX [Concomitant]
     Active Substance: HYDROXYZINE HYDROCHLORIDE
  13. VITAMINS [Concomitant]
     Active Substance: VITAMINS
  14. KELP [Concomitant]
     Active Substance: KELP
  15. COQ19 CINNAMON [Concomitant]
  16. PRASTERONE [Concomitant]
     Active Substance: PRASTERONE
  17. POTASSIUM [Concomitant]
     Active Substance: POTASSIUM
  18. VITAMIN D NOS [Concomitant]
     Active Substance: CHOLECALCIFEROL\ERGOCALCIFEROL
  19. MAGNESIUM [Concomitant]
     Active Substance: MAGNESIUM
  20. FOLATE SODIUM [Concomitant]
     Active Substance: FOLATE SODIUM
  21. VITAMIN B COMPLEX [Concomitant]
     Active Substance: CYANOCOBALAMIN\DEXPANTHENOL\NIACINAMIDE\PYRIDOXINE HYDROCHLORIDE\RIBOFLAVIN 5^-PHOSPHATE SODIUM\THIA

REACTIONS (5)
  - Back pain [None]
  - Muscle spasms [None]
  - Migraine [None]
  - Painful respiration [None]
  - Dyspnoea [None]

NARRATIVE: CASE EVENT DATE: 20241216
